FAERS Safety Report 23069020 (Version 1)
Quarter: 2023Q4

REPORT INFORMATION
  Report Type: Other
  Country: FR (occurrence: FR)
  Receive Date: 20231016
  Receipt Date: 20231016
  Transmission Date: 20240110
  Serious: Yes (Hospitalization)
  Sender: FDA-Public Use
  Company Number: None

PATIENT

DRUGS (4)
  1. RUXOLITINIB [Suspect]
     Active Substance: RUXOLITINIB
     Indication: Myelodysplastic syndrome with excess blasts
     Dosage: 10 MG, Q12H (COMPRIM?)
     Route: 048
     Dates: start: 20230526
  2. VIDAZA [Suspect]
     Active Substance: AZACITIDINE
     Indication: Myelodysplastic syndrome with excess blasts
     Dosage: 65 MG, QD (C1)
     Route: 042
     Dates: start: 20230530, end: 20230607
  3. VIDAZA [Suspect]
     Active Substance: AZACITIDINE
     Dosage: 65 MG, QD (C2)
     Route: 042
     Dates: start: 20230627, end: 20230704
  4. VIDAZA [Suspect]
     Active Substance: AZACITIDINE
     Dosage: 65 MG, QD (C3)
     Route: 042
     Dates: start: 20230810, end: 20230816

REACTIONS (2)
  - Lymph node tuberculosis [Recovering/Resolving]
  - Acute febrile neutrophilic dermatosis [Recovering/Resolving]

NARRATIVE: CASE EVENT DATE: 20230815
